FAERS Safety Report 10137207 (Version 2)
Quarter: 2014Q2

REPORT INFORMATION
  Report Type: Spontaneous
  Country: GB (occurrence: None)
  Receive Date: 20140425
  Receipt Date: 20140429
  Transmission Date: 20141212
  Serious: Yes (Other)
  Sender: FDA-Public Use
  Company Number: AUR-APL-2014-04838

PATIENT
  Age: 65 Year
  Sex: Female
  Weight: 89.9 kg

DRUGS (9)
  1. RAMIPRIL (RAMIPRIL) [Suspect]
     Indication: PRODUCT USED FOR UNKNOWN INDICATION
     Dates: start: 20140310
  2. AQUEOUS CREAM (CETOSTEARYL ALCOHOL) [Concomitant]
  3. CLENIL MODULITE [Concomitant]
  4. FELODIPINE [Concomitant]
  5. IBUPROFEN (IBUPROFEN) [Concomitant]
  6. METFORMIN (METFORMIN) [Concomitant]
  7. OMEPRAZOLE (OMEPRAZOLE) [Concomitant]
  8. TOLTERODINE TARTRATE [Concomitant]
  9. VENTOLIN (SALBUTAMOL) [Concomitant]

REACTIONS (2)
  - Dyspnoea [None]
  - Wheezing [None]
